FAERS Safety Report 8506409-9 (Version None)
Quarter: 2012Q3

REPORT INFORMATION
  Report Type: 
  Country: None (occurrence: None)
  Receive Date: 20120712
  Receipt Date: 20120711
  Transmission Date: 20120928
  Serious: Yes (Other)
  Sender: FDA-Public Use
  Company Number: US-PFIZER INC-2012166985

PATIENT
  Sex: Female
  Weight: 72.562 kg

DRUGS (4)
  1. COUMADIN [Concomitant]
     Dosage: 2 MG, 1X/DAY
     Route: 048
  2. DIGOXIN [Concomitant]
     Dosage: 0.125 MG, UNK
  3. LIPITOR [Suspect]
     Indication: BLOOD CHOLESTEROL INCREASED
     Dosage: 40 MG, 1X/DAY
     Route: 048
     Dates: start: 20100901, end: 20101101
  4. LASIX [Concomitant]
     Dosage: 40 MG, 1X/DAY

REACTIONS (2)
  - WEIGHT INCREASED [None]
  - STRESS [None]
